FAERS Safety Report 6125223-5 (Version None)
Quarter: 2009Q1

REPORT INFORMATION
  Report Type: 
  Country: None (occurrence: None)
  Receive Date: 20090320
  Receipt Date: 20090309
  Transmission Date: 20090719
  Serious: Yes (Other)
  Sender: FDA-Public Use
  Company Number: GB-RANBAXY-2009RR-22634

PATIENT
  Age: 16 Year
  Sex: Female

DRUGS (2)
  1. ISOTRETINOIN [Suspect]
     Indication: ACNE
     Dosage: 30 MG, UNK
     Route: 048
     Dates: start: 20081218, end: 20090116
  2. DIANETTE [Concomitant]
     Route: 065

REACTIONS (1)
  - BLINDNESS [None]
